FAERS Safety Report 11156570 (Version 1)
Quarter: 2015Q2

REPORT INFORMATION
  Report Type: Spontaneous
  Country: US (occurrence: None)
  Receive Date: 20150601
  Receipt Date: 20150601
  Transmission Date: 20150821
  Serious: Yes (Other)
  Sender: FDA-Public Use
  Company Number: None

PATIENT
  Age: 29 Year
  Sex: Male
  Weight: 129.28 kg

DRUGS (6)
  1. MULTIVITAMIN [Concomitant]
     Active Substance: VITAMINS
  2. VITAMIN D SUPPLIMENT [Concomitant]
  3. MELATONIN [Concomitant]
     Active Substance: MELATONIN
  4. DOXYLAMINE [Concomitant]
     Active Substance: DOXYLAMINE
  5. BENADRYL [Concomitant]
     Active Substance: DIPHENHYDRAMINE HYDROCHLORIDE
  6. AMBIEN [Suspect]
     Active Substance: ZOLPIDEM TARTRATE
     Indication: INSOMNIA
     Dosage: PRN
     Route: 048
     Dates: start: 20150301, end: 20150331

REACTIONS (3)
  - Toxicity to various agents [None]
  - Mania [None]
  - Diplopia [None]

NARRATIVE: CASE EVENT DATE: 20150531
